FAERS Safety Report 9052447 (Version 1)
Quarter: 2013Q1

REPORT INFORMATION
  Report Type: Spontaneous
  Country: DE (occurrence: DE)
  Receive Date: 20130207
  Receipt Date: 20130207
  Transmission Date: 20140127
  Serious: Yes (Other)
  Sender: FDA-Public Use
  Company Number: DE-US-EMD SERONO, INC.-7190952

PATIENT
  Age: 28 None
  Sex: Female

DRUGS (1)
  1. REBIF [Suspect]
     Indication: MULTIPLE SCLEROSIS
     Route: 058
     Dates: start: 20101224

REACTIONS (4)
  - Haemorrhage [Unknown]
  - Cervix inflammation [Not Recovered/Not Resolved]
  - Abdominal pain upper [Unknown]
  - Immune system disorder [Unknown]
